FAERS Safety Report 16438152 (Version 6)
Quarter: 2019Q4

REPORT INFORMATION
  Report Type: Report from Study
  Country: US (occurrence: US)
  Receive Date: 20190617
  Receipt Date: 20191002
  Transmission Date: 20200122
  Serious: Yes (Hospitalization)
  Sender: FDA-Public Use
  Company Number: PHEH2019US025316

PATIENT
  Sex: Female
  Weight: 71.66 kg

DRUGS (5)
  1. REMODULIN [Concomitant]
     Active Substance: TREPROSTINIL
     Indication: PULMONARY ARTERIAL HYPERTENSION
     Dosage: 42 NG/KG/ M I N
     Route: 042
     Dates: start: 20190920
  2. ADEMPAS [Concomitant]
     Active Substance: RIOCIGUAT
     Indication: PRODUCT USED FOR UNKNOWN INDICATION
     Route: 065
  3. AMLODIPINE [Concomitant]
     Active Substance: AMLODIPINE BESYLATE
     Indication: PRODUCT USED FOR UNKNOWN INDICATION
     Route: 065
  4. TREPROSTINIL. [Suspect]
     Active Substance: TREPROSTINIL
     Indication: PULMONARY ARTERIAL HYPERTENSION
     Dosage: 1 DF (47 NG/KG/MIN), CONTINUOUS
     Route: 042
     Dates: start: 20190418
  5. LETAIRIS [Concomitant]
     Active Substance: AMBRISENTAN
     Indication: PRODUCT USED FOR UNKNOWN INDICATION
     Route: 065

REACTIONS (11)
  - Polyuria [Unknown]
  - Skin burning sensation [Unknown]
  - Pulmonary oedema [Unknown]
  - Increased appetite [Unknown]
  - Dyspnoea [Unknown]
  - Fluid retention [Unknown]
  - Pruritus [Unknown]
  - Anxiety [Unknown]
  - Weight increased [Unknown]
  - Gait disturbance [Unknown]
  - Memory impairment [Unknown]
